FAERS Safety Report 20176347 (Version 1)
Quarter: 2021Q4

REPORT INFORMATION
  Report Type: Report from Study
  Country: IT (occurrence: IT)
  Receive Date: 20211213
  Receipt Date: 20211213
  Transmission Date: 20220303
  Serious: Yes (Other)
  Sender: FDA-Public Use
  Company Number: IT-TAKEDA-2020TUS056115

PATIENT
  Age: 61 Year
  Sex: Male

DRUGS (13)
  1. TEDUGLUTIDE [Suspect]
     Active Substance: TEDUGLUTIDE
     Indication: Short-bowel syndrome
     Dosage: 2.0 MILLIGRAM (TED DAILY DOSES 0.020 MILLIGRAM/KILOGRAM, TED DOSES PER WEEK 7)
     Route: 065
     Dates: start: 20191005, end: 202002
  2. TEDUGLUTIDE [Suspect]
     Active Substance: TEDUGLUTIDE
     Indication: Short-bowel syndrome
     Dosage: 2.0 MILLIGRAM (TED DAILY DOSES 0.020 MILLIGRAM/KILOGRAM, TED DOSES PER WEEK 7)
     Route: 065
     Dates: start: 20191005, end: 202002
  3. TEDUGLUTIDE [Suspect]
     Active Substance: TEDUGLUTIDE
     Indication: Short-bowel syndrome
     Dosage: 2.0 MILLIGRAM (TED DAILY DOSES 0.020 MILLIGRAM/KILOGRAM, TED DOSES PER WEEK 7)
     Route: 065
     Dates: start: 20191005, end: 202002
  4. TEDUGLUTIDE [Suspect]
     Active Substance: TEDUGLUTIDE
     Indication: Short-bowel syndrome
     Dosage: 2.0 MILLIGRAM (TED DAILY DOSES 0.020 MILLIGRAM/KILOGRAM, TED DOSES PER WEEK 7)
     Route: 065
     Dates: start: 20191005, end: 202002
  5. TEDUGLUTIDE [Suspect]
     Active Substance: TEDUGLUTIDE
     Dosage: 2.0 MILLIGRAM (TED DAILY DOSES 0.020 MILLIGRAM/KILOGRAM, TED DOSES PER WEEK 7)
     Route: 065
     Dates: start: 20200318, end: 20201105
  6. TEDUGLUTIDE [Suspect]
     Active Substance: TEDUGLUTIDE
     Dosage: 2.0 MILLIGRAM (TED DAILY DOSES 0.020 MILLIGRAM/KILOGRAM, TED DOSES PER WEEK 7)
     Route: 065
     Dates: start: 20200318, end: 20201105
  7. TEDUGLUTIDE [Suspect]
     Active Substance: TEDUGLUTIDE
     Dosage: 2.0 MILLIGRAM (TED DAILY DOSES 0.020 MILLIGRAM/KILOGRAM, TED DOSES PER WEEK 7)
     Route: 065
     Dates: start: 20200318, end: 20201105
  8. TEDUGLUTIDE [Suspect]
     Active Substance: TEDUGLUTIDE
     Dosage: 2.0 MILLIGRAM (TED DAILY DOSES 0.020 MILLIGRAM/KILOGRAM, TED DOSES PER WEEK 7)
     Route: 065
     Dates: start: 20200318, end: 20201105
  9. IMODIUM [Concomitant]
     Active Substance: LOPERAMIDE HYDROCHLORIDE
     Indication: Prophylaxis
     Dosage: 2 MILLIGRAM, QD
     Route: 048
     Dates: start: 202003
  10. POTASSIUM CHLORIDE [Concomitant]
     Active Substance: POTASSIUM CHLORIDE
     Indication: Nutritional supplementation
     Dosage: 600 MILLIGRAM, TID
     Route: 048
     Dates: start: 20190924, end: 20191014
  11. ELECTROLYTES NOS\MINERALS\SORBITOL [Concomitant]
     Active Substance: ELECTROLYTES NOS\MINERALS\SORBITOL
     Indication: Supplementation therapy
     Dosage: 10 MILLILITER, 5/WEEK
     Route: 042
     Dates: start: 20171219
  12. CERNEVIT [Concomitant]
     Active Substance: VITAMINS
     Indication: Supplementation therapy
     Dosage: 5 MILLILITER, QD
     Route: 042
  13. MEROPENEM [Concomitant]
     Active Substance: MEROPENEM
     Indication: Klebsiella infection
     Dosage: 1.00 GRAM, BID
     Route: 042
     Dates: start: 20201122, end: 20201208

REACTIONS (1)
  - Deep vein thrombosis [Not Recovered/Not Resolved]

NARRATIVE: CASE EVENT DATE: 20201007
